FAERS Safety Report 20697593 (Version 4)
Quarter: 2022Q4

REPORT INFORMATION
  Report Type: Spontaneous
  Country: FR (occurrence: FR)
  Receive Date: 20220411
  Receipt Date: 20221116
  Transmission Date: 20230112
  Serious: Yes (Hospitalization)
  Sender: FDA-Public Use
  Company Number: FR-Accord-258765

PATIENT
  Age: 76 Year
  Sex: Male
  Weight: 92 kg

DRUGS (24)
  1. RITUXIMAB [Suspect]
     Active Substance: RITUXIMAB
     Indication: Product used for unknown indication
     Route: 042
     Dates: start: 20220224
  2. OXALIPLATIN [Suspect]
     Active Substance: OXALIPLATIN
     Indication: Product used for unknown indication
     Route: 042
     Dates: start: 20220225
  3. GEMCITABINE HYDROCHLORIDE [Suspect]
     Active Substance: GEMCITABINE HYDROCHLORIDE
     Indication: Product used for unknown indication
     Route: 042
     Dates: start: 20220225
  4. LANSOPRAZOLE [Concomitant]
     Active Substance: LANSOPRAZOLE
     Dates: start: 20220224
  5. CARTEOLOL [Concomitant]
     Active Substance: CARTEOLOL
     Dates: start: 2010
  6. NEFOPAM [Concomitant]
     Active Substance: NEFOPAM
     Dates: start: 20220223, end: 20220225
  7. METOCLOPRAMIDE [Concomitant]
     Active Substance: METOCLOPRAMIDE
     Dates: start: 20220225
  8. FILGRASTIM [Concomitant]
     Active Substance: FILGRASTIM
     Dates: start: 20220226, end: 20220304
  9. APREPITANT [Concomitant]
     Active Substance: APREPITANT
     Dates: start: 20220225, end: 20220225
  10. ALFUZOSIN HYDROCHLORIDE [Concomitant]
     Active Substance: ALFUZOSIN HYDROCHLORIDE
     Dates: start: 20220223
  11. ACETAMINOPHEN [Concomitant]
     Active Substance: ACETAMINOPHEN
     Dates: start: 20220225
  12. IRBESARTAN [Concomitant]
     Active Substance: IRBESARTAN
     Dates: start: 1990
  13. PAROXETINE [Concomitant]
     Active Substance: PAROXETINE
     Dates: start: 20220224
  14. VALACYCLOVIR HYDROCHLORIDE [Concomitant]
     Active Substance: VALACYCLOVIR HYDROCHLORIDE
     Dates: start: 202105
  15. RASBURICASE [Concomitant]
     Active Substance: RASBURICASE
     Dates: start: 20220224, end: 20220224
  16. ONDANSETRON [Concomitant]
     Active Substance: ONDANSETRON
     Dates: start: 20220225
  17. POLYETHYLENE GLYCOLS [Concomitant]
     Active Substance: POLYETHYLENE GLYCOLS
     Dates: start: 20220225
  18. ZOPICLONE [Concomitant]
     Active Substance: ZOPICLONE
     Dates: start: 20220223
  19. FUROSEMIDE [Concomitant]
     Active Substance: FUROSEMIDE
     Dates: start: 20220224
  20. ATOVAQUONE [Concomitant]
     Active Substance: ATOVAQUONE
     Dates: start: 20220223
  21. NEBIVOLOL [Concomitant]
     Active Substance: NEBIVOLOL
     Dates: start: 1990
  22. CILGAVIMAB\TIXAGEVIMAB [Concomitant]
     Active Substance: CILGAVIMAB\TIXAGEVIMAB
     Dates: start: 20220225, end: 20220225
  23. ALPRAZOLAM [Concomitant]
     Active Substance: ALPRAZOLAM
     Dates: start: 20220223
  24. CILGAVIMAB\TIXAGEVIMAB [Concomitant]
     Active Substance: CILGAVIMAB\TIXAGEVIMAB

REACTIONS (2)
  - Constipation [Recovered/Resolved]
  - Urinary tract infection [Recovered/Resolved]

NARRATIVE: CASE EVENT DATE: 20220226
